FAERS Safety Report 19950054 (Version 1)
Quarter: 2021Q4

REPORT INFORMATION
  Report Type: Spontaneous
  Country: US (occurrence: US)
  Receive Date: 20211013
  Receipt Date: 20211013
  Transmission Date: 20220303
  Serious: Yes (Other)
  Sender: FDA-Public Use
  Company Number: None

PATIENT
  Age: 25 Year
  Sex: Female

DRUGS (1)
  1. BAQSIMI [Suspect]
     Active Substance: GLUCAGON
     Indication: Hypoglycaemia
     Route: 045
     Dates: start: 20210806, end: 20210806

REACTIONS (3)
  - Headache [None]
  - Vision blurred [None]
  - Lacrimation increased [None]

NARRATIVE: CASE EVENT DATE: 20210806
